FAERS Safety Report 23288811 (Version 2)
Quarter: 2024Q2

REPORT INFORMATION
  Report Type: Spontaneous
  Country: US (occurrence: US)
  Receive Date: 20231212
  Receipt Date: 20240514
  Transmission Date: 20240716
  Serious: No
  Sender: FDA-Public Use
  Company Number: US-SA-SAC20231207001210

PATIENT
  Age: 37 Year
  Sex: Female
  Weight: 120 kg

DRUGS (10)
  1. KEVZARA [Suspect]
     Active Substance: SARILUMAB
     Indication: Rheumatoid arthritis
     Dosage: 200 MG, QOW
     Route: 058
     Dates: start: 20231121, end: 20231219
  2. ARTICHOKE LEAF EXTRACT [Concomitant]
     Dosage: 8000 MG QD
     Route: 048
  3. ATORVASTATIN [Concomitant]
     Active Substance: ATORVASTATIN
     Dosage: 10MG TABLET, 1 (ONE) ORAL DAILY
     Route: 048
     Dates: start: 20230502
  4. CYCLOBENZAPRINE [Concomitant]
     Active Substance: CYCLOBENZAPRINE
     Dosage: 10MG TABLET, 1 (ONE) TABLET ORAL TWO TIMES DAILY
     Route: 048
     Dates: start: 20231107
  5. DIFLUCAN [Concomitant]
     Active Substance: FLUCONAZOLE
     Dosage: 150MG TABLET, 1 (ONE) ORAL EVERY 3 DAYS AS NEEDED
     Route: 048
     Dates: start: 20220912
  6. EFFEXOR [Concomitant]
     Active Substance: VENLAFAXINE HYDROCHLORIDE
     Dosage: 75MG CAPSULE, EXTEND, 1 CAPSULE ORAL DAILY
     Route: 048
  7. LISINOPRIL [Concomitant]
     Active Substance: LISINOPRIL
     Dosage: 5MG TABLET, 1 TABLET ORAL ONCE DAILY
     Route: 048
     Dates: start: 20230205
  8. OMEPRAZOLE [Concomitant]
     Active Substance: DONEPEZIL HYDROCHLORIDE\OMEPRAZOLE\OMEPRAZOLE MAGNESIUM
     Dosage: 20MG CAPSULE, DELAYED, 1 TAB ORAL DAILY
     Route: 048
  9. TOPAMAX [Concomitant]
     Active Substance: TOPIRAMATE
     Dosage: 50MG TABLET, 1 (ONE) TABLET ORAL TWO TIMES DAILY
     Route: 048
  10. ARTICHOKE LEAF EXTRACT [Concomitant]
     Dosage: UNK

REACTIONS (9)
  - Fatigue [Unknown]
  - Erythema [Recovering/Resolving]
  - Dry skin [Recovering/Resolving]
  - Pruritus [Recovering/Resolving]
  - Pain [Recovering/Resolving]
  - Skin swelling [Recovering/Resolving]
  - Rash [Recovering/Resolving]
  - Hypersensitivity [Unknown]
  - Therapeutic product effect decreased [Unknown]

NARRATIVE: CASE EVENT DATE: 20230101
